FAERS Safety Report 9334443 (Version 2)
Quarter: 2014Q2

REPORT INFORMATION
  Report Type: Spontaneous
  Country: US (occurrence: US)
  Receive Date: 20130606
  Receipt Date: 20140411
  Transmission Date: 20141212
  Serious: Yes (Death)
  Sender: FDA-Public Use
  Company Number: US-B.I. PHARMACEUTICALS,INC./RIDGEFIELD-2013-BI-15623BP

PATIENT
  Sex: Male
  Weight: 163 kg

DRUGS (18)
  1. PRADAXA [Suspect]
     Indication: CEREBROVASCULAR ACCIDENT PROPHYLAXIS
     Route: 065
     Dates: start: 20110529, end: 20110628
  2. PRADAXA [Suspect]
     Indication: THROMBOSIS PROPHYLAXIS
  3. COMBIVENT [Concomitant]
     Route: 065
     Dates: start: 2010, end: 2013
  4. FLOMAX [Concomitant]
     Route: 065
  5. DETROL LA [Concomitant]
     Route: 065
  6. ENDODERM PATCH [Concomitant]
     Route: 065
  7. AVODART [Concomitant]
     Route: 065
  8. SINEMET [Concomitant]
     Route: 065
  9. ASPIRIN [Concomitant]
     Route: 065
     Dates: start: 2010, end: 2013
  10. PLAVIX [Concomitant]
     Route: 065
     Dates: start: 2010, end: 2011
  11. METHADONE [Concomitant]
     Route: 065
     Dates: start: 2010, end: 2013
  12. LYRICA [Concomitant]
     Route: 065
     Dates: start: 2009, end: 2013
  13. PAXIL [Concomitant]
     Route: 065
     Dates: start: 2008, end: 2013
  14. BUMEX [Concomitant]
     Route: 065
     Dates: start: 2011, end: 2013
  15. TOPROL XL [Concomitant]
     Route: 065
     Dates: start: 2009, end: 2013
  16. ALDACTONE [Concomitant]
     Route: 065
     Dates: start: 2010, end: 2013
  17. SYMBICORT [Concomitant]
     Route: 065
     Dates: start: 2011, end: 2013
  18. LISINOPRIL [Concomitant]
     Route: 065

REACTIONS (1)
  - Gastrointestinal haemorrhage [Fatal]
